FAERS Safety Report 20918315 (Version 1)
Quarter: 2022Q2

REPORT INFORMATION
  Report Type: Report from Study
  Country: AU (occurrence: AU)
  Receive Date: 20220606
  Receipt Date: 20220606
  Transmission Date: 20220721
  Serious: Yes (Life-Threatening, Other)
  Sender: FDA-Public Use
  Company Number: AU-BRISTOL-MYERS SQUIBB COMPANY-2022-049820

PATIENT
  Age: 62 Year
  Weight: 101 kg

DRUGS (2)
  1. CARBOPLATIN [Suspect]
     Active Substance: CARBOPLATIN
     Indication: Gastrointestinal neuroendocrine carcinoma
     Route: 065
     Dates: start: 20211112
  2. PACLITAXEL [Suspect]
     Active Substance: PACLITAXEL
     Indication: Gastrointestinal neuroendocrine carcinoma
     Route: 065
     Dates: start: 20211112

REACTIONS (1)
  - Depressed level of consciousness [Not Recovered/Not Resolved]

NARRATIVE: CASE EVENT DATE: 20220527
